FAERS Safety Report 9105250 (Version 1)
Quarter: 2013Q1

REPORT INFORMATION
  Report Type: Spontaneous
  Country: AU (occurrence: AU)
  Receive Date: 20130220
  Receipt Date: 20130220
  Transmission Date: 20140127
  Serious: Yes (Other)
  Sender: FDA-Public Use
  Company Number: PHHY2013AU012081

PATIENT
  Age: 75 Year
  Sex: Male

DRUGS (9)
  1. ONBREZ [Suspect]
     Indication: CHRONIC OBSTRUCTIVE PULMONARY DISEASE
     Dosage: 1 DF, QD
     Dates: start: 20120706, end: 20120713
  2. FENTANYL [Concomitant]
     Indication: PAIN
     Dosage: 25 UG, UNK
     Route: 061
     Dates: start: 20090603
  3. DUODART [Concomitant]
     Dosage: ONCE DAILY
     Route: 048
     Dates: start: 20111205
  4. ENDEP [Concomitant]
     Indication: DEPRESSION
     Dosage: 25 MG, UNK
     Route: 048
     Dates: start: 20120323
  5. AUGMENTIN [Concomitant]
     Dosage: 875/125 TBD
     Route: 048
     Dates: start: 20120911
  6. ATROVENT [Concomitant]
     Dosage: 21 UG, QID
  7. ASMOL [Concomitant]
     Dosage: 100 UG, PRN
     Route: 048
     Dates: start: 20070330
  8. SYMBICORT [Concomitant]
     Dosage: UNK
     Dates: start: 20070330
  9. SPIRIVA [Concomitant]
     Dosage: 18 UG, TID

REACTIONS (1)
  - Vomiting [Recovered/Resolved]
